FAERS Safety Report 21423257 (Version 1)
Quarter: 2022Q4

REPORT INFORMATION
  Report Type: Spontaneous
  Country: US (occurrence: None)
  Receive Date: 20221006
  Receipt Date: 20221006
  Transmission Date: 20230113
  Serious: No
  Sender: FDA-Public Use
  Company Number: None

PATIENT
  Age: 45 Year
  Sex: Female

DRUGS (8)
  1. ENBREL [Suspect]
     Active Substance: ETANERCEPT
     Indication: Rheumatoid arthritis
     Dosage: OTHER FREQUENCY : ONCE WEEKLY;?
     Route: 058
  2. LAMOTRIGINE [Concomitant]
     Active Substance: LAMOTRIGINE
  3. BUPROPION [Concomitant]
     Active Substance: BUPROPION
  4. DIAZEPAM [Concomitant]
     Active Substance: DIAZEPAM
  5. DULOXETINE [Concomitant]
     Active Substance: DULOXETINE
  6. ADDERALL [Concomitant]
     Active Substance: AMPHETAMINE ASPARTATE\AMPHETAMINE SULFATE\DEXTROAMPHETAMINE SACCHARATE\DEXTROAMPHETAMINE SULFATE
  7. PREDNISONE [Concomitant]
     Active Substance: PREDNISONE
  8. OXCARBAZEPINE [Concomitant]
     Active Substance: OXCARBAZEPINE

REACTIONS (2)
  - Temperature intolerance [None]
  - Dizziness [None]

NARRATIVE: CASE EVENT DATE: 20220801
